FAERS Safety Report 8181451-9 (Version None)
Quarter: 2012Q1

REPORT INFORMATION
  Report Type: 
  Country: None (occurrence: None)
  Receive Date: 20120302
  Receipt Date: 20120222
  Transmission Date: 20120608
  Serious: Yes (Other)
  Sender: FDA-Public Use
  Company Number: CN-ASTRAZENECA-2012SE12195

PATIENT
  Age: 22 Year
  Sex: Male

DRUGS (1)
  1. SYMBICORT [Suspect]
     Indication: ASTHMA
     Dosage: 2 PUFF TWO TIMES A DAY
     Route: 055
     Dates: start: 20120201

REACTIONS (2)
  - PYREXIA [None]
  - VOMITING [None]
